FAERS Safety Report 5398697-5 (Version None)
Quarter: 2007Q3

REPORT INFORMATION
  Report Type: 
  Country: None (occurrence: None)
  Receive Date: 20070726
  Receipt Date: 20070531
  Transmission Date: 20080115
  Serious: No
  Sender: FDA-Public Use
  Company Number: US-AMGEN-KDL227006

PATIENT
  Sex: Female

DRUGS (9)
  1. EPOGEN [Suspect]
     Indication: ANAEMIA
     Dates: start: 20070501
  2. COUMADIN [Concomitant]
  3. PREDNISONE TAB [Concomitant]
  4. CELLCEPT [Concomitant]
  5. BACTRIM [Concomitant]
  6. ZOCOR [Concomitant]
  7. METOPROLOL SUCCINATE [Concomitant]
  8. PROTONIX [Concomitant]
  9. OXYCODONE HCL [Concomitant]

REACTIONS (1)
  - CHEST PAIN [None]
